FAERS Safety Report 17007265 (Version 4)
Quarter: 2019Q4

REPORT INFORMATION
  Report Type: Report from Study
  Country: CA (occurrence: CA)
  Receive Date: 20191108
  Receipt Date: 20191209
  Transmission Date: 20200122
  Serious: Yes (Death)
  Sender: FDA-Public Use
  Company Number: CA-HLSUS-2019-CA-001501

PATIENT
  Age: 77 Year
  Sex: Female
  Weight: 98 kg

DRUGS (7)
  1. TYLENOL [Concomitant]
     Active Substance: ACETAMINOPHEN
     Indication: PAIN
     Dosage: 650MG TID
     Route: 048
     Dates: start: 201806, end: 201910
  2. EPIVAL [Concomitant]
     Active Substance: DIVALPROEX SODIUM
     Indication: SCHIZOAFFECTIVE DISORDER
     Dosage: 500MG BID
     Route: 048
     Dates: start: 201711, end: 201910
  3. CLOZARIL [Suspect]
     Active Substance: CLOZAPINE
     Indication: SCHIZOPHRENIA
     Dosage: 50MG BID
     Route: 048
     Dates: start: 20050816, end: 20191026
  4. HALDOL [Concomitant]
     Active Substance: HALOPERIDOL
     Indication: SCHIZOPHRENIA
     Dosage: 1MG QID
     Route: 048
     Dates: start: 201812, end: 201910
  5. SYNTHROID [Concomitant]
     Active Substance: LEVOTHYROXINE SODIUM
     Indication: HYPOTHYROIDISM
     Dosage: 100MCG
     Route: 048
     Dates: start: 201807, end: 201910
  6. LASIX [Concomitant]
     Active Substance: FUROSEMIDE
     Indication: OEDEMA
     Dosage: 20MG
     Route: 048
     Dates: start: 201811, end: 201910
  7. FOLIC ACID. [Concomitant]
     Active Substance: FOLIC ACID
     Indication: PROPHYLAXIS
     Dosage: 1MG DAILY
     Route: 048
     Dates: start: 201612, end: 201910

REACTIONS (3)
  - Haemoglobin decreased [Unknown]
  - Pneumonia [Fatal]
  - Blood creatine increased [Unknown]

NARRATIVE: CASE EVENT DATE: 20191018
